FAERS Safety Report 6509128-3 (Version None)
Quarter: 2009Q4

REPORT INFORMATION
  Report Type: 
  Country: None (occurrence: None)
  Receive Date: 20091221
  Receipt Date: 20091209
  Transmission Date: 20100525
  Serious: Yes (Other)
  Sender: FDA-Public Use
  Company Number: JP-PFIZER INC-2009311066

PATIENT
  Age: 48 Year

DRUGS (1)
  1. ZOLOFT [Suspect]
     Dosage: UNK
     Route: 048

REACTIONS (3)
  - DEAFNESS [None]
  - EAR DISCOMFORT [None]
  - MENIERE'S DISEASE [None]
